FAERS Safety Report 12164397 (Version 2)
Quarter: 2016Q1

REPORT INFORMATION
  Report Type: Report from Study
  Country: ES (occurrence: ES)
  Receive Date: 20160309
  Receipt Date: 20160321
  Transmission Date: 20160526
  Serious: Yes (Hospitalization)
  Sender: FDA-Public Use
  Company Number: ES-PFIZER INC-2016141110

PATIENT
  Age: 42 Year
  Sex: Female

DRUGS (4)
  1. DICLOFENACO /00372301/ [Suspect]
     Active Substance: DICLOFENAC
     Indication: ABDOMINAL PAIN
     Dosage: 50 MG, 3X/DAY (1-1-1)
     Route: 048
     Dates: start: 20140908, end: 20141003
  2. METAMIZOL [Concomitant]
     Active Substance: METAMIZOLE SODIUM
     Indication: ABDOMINAL PAIN
     Dosage: 575 MG, 3X/DAY (1-1-1)
     Route: 048
     Dates: start: 20140926, end: 20141003
  3. LOETTE [Suspect]
     Active Substance: ETHINYL ESTRADIOL\LEVONORGESTREL
     Indication: CONTRACEPTION
     Dosage: 1 DF, CYCLIC (1 TABLET X 21 DAYS)
     Route: 048
     Dates: start: 20140411, end: 20141003
  4. PARACETAMOL [Concomitant]
     Active Substance: ACETAMINOPHEN
     Indication: ABDOMINAL PAIN
     Dosage: 1 G, 3X/DAY (1-1-1)
     Route: 048
     Dates: start: 20140926, end: 20141003

REACTIONS (1)
  - Left ventricular dysfunction [Recovered/Resolved with Sequelae]

NARRATIVE: CASE EVENT DATE: 20141003
